FAERS Safety Report 14040780 (Version 1)
Quarter: 2017Q4

REPORT INFORMATION
  Report Type: Report from Study
  Country: None (occurrence: US)
  Receive Date: 20171004
  Receipt Date: 20171004
  Transmission Date: 20180321
  Serious: Yes (Hospitalization)
  Sender: FDA-Public Use
  Company Number: US-ABBVIE-17P-163-2099209-00

PATIENT
  Age: 68 Year
  Sex: Male
  Weight: 59.93 kg

DRUGS (1)
  1. CREON [Suspect]
     Active Substance: PANCRELIPASE AMYLASE\PANCRELIPASE LIPASE\PANCRELIPASE PROTEASE
     Indication: PRODUCT USED FOR UNKNOWN INDICATION
     Route: 048
     Dates: start: 201610

REACTIONS (8)
  - Dehydration [Unknown]
  - Dehydration [Unknown]
  - Dehydration [Unknown]
  - Constipation [Unknown]
  - Constipation [Unknown]
  - Constipation [Unknown]
  - Constipation [Unknown]
  - Constipation [Unknown]

NARRATIVE: CASE EVENT DATE: 201610
